FAERS Safety Report 13247061 (Version 1)
Quarter: 2017Q1

REPORT INFORMATION
  Report Type: Report from Study
  Country: JP (occurrence: JP)
  Receive Date: 20170217
  Receipt Date: 20170217
  Transmission Date: 20170428
  Serious: Yes (Hospitalization)
  Sender: FDA-Public Use
  Company Number: JP-SA-2017SA026334

PATIENT
  Age: 66 Year
  Sex: Female

DRUGS (6)
  1. DARBEPOETIN ALFA [Suspect]
     Active Substance: DARBEPOETIN ALFA
     Route: 042
     Dates: start: 20160219, end: 20160401
  2. PHOSBLOCK [Suspect]
     Active Substance: FERRIC HYDROXIDE
     Route: 048
     Dates: start: 20160217
  3. DARBEPOETIN ALFA [Suspect]
     Active Substance: DARBEPOETIN ALFA
     Route: 042
     Dates: start: 20150606, end: 20150925
  4. REGPARA [Suspect]
     Active Substance: CINACALCET HYDROCHLORIDE
     Route: 048
     Dates: start: 20150606
  5. ROCALTROL [Suspect]
     Active Substance: CALCITRIOL
     Route: 042
     Dates: start: 20151001, end: 20160429
  6. ROCALTROL [Suspect]
     Active Substance: CALCITRIOL
     Route: 042
     Dates: start: 20160506, end: 20160506

REACTIONS (3)
  - Cataract [Recovering/Resolving]
  - Arteriovenous fistula site complication [Recovering/Resolving]
  - Cataract [Recovering/Resolving]

NARRATIVE: CASE EVENT DATE: 20150613
